FAERS Safety Report 9955500 (Version 1)
Quarter: 2014Q1

REPORT INFORMATION
  Report Type: Report from Study
  Country: US (occurrence: US)
  Receive Date: 20140304
  Receipt Date: 20140304
  Transmission Date: 20141002
  Serious: No
  Sender: FDA-Public Use
  Company Number: US-ABBVIE-13P-163-1076968-00

PATIENT
  Age: 75 Year
  Sex: Male

DRUGS (8)
  1. HUMIRA [Suspect]
     Indication: PSORIASIS
     Dates: start: 20130326
  2. HUMIRA [Suspect]
     Dates: start: 20130402
  3. ASPIRIN [Concomitant]
     Indication: ANTICOAGULANT THERAPY
  4. METOPROLOL [Concomitant]
     Indication: HYPERTENSION
  5. MELOXICAM [Concomitant]
     Indication: ARTHRALGIA
  6. GLUCOPHAGE [Concomitant]
     Indication: DIABETES MELLITUS
  7. GLYBURIDE [Concomitant]
     Indication: DIABETES MELLITUS
  8. NITROQUICK [Concomitant]
     Indication: ANGINA PECTORIS
     Dosage: SUBLINGUAL

REACTIONS (3)
  - Rash erythematous [Not Recovered/Not Resolved]
  - Drug ineffective [Unknown]
  - Pruritus [Unknown]
